FAERS Safety Report 25850889 (Version 1)
Quarter: 2025Q3

REPORT INFORMATION
  Report Type: Spontaneous
  Country: CA (occurrence: CA)
  Receive Date: 20250926
  Receipt Date: 20250926
  Transmission Date: 20251021
  Serious: Yes (Hospitalization, Other)
  Sender: STRIDES
  Company Number: CA-STRIDES ARCOLAB LIMITED-2025SP012055

PATIENT
  Age: 40 Year
  Sex: Female

DRUGS (18)
  1. PREDNISONE [Suspect]
     Active Substance: PREDNISONE
     Indication: Capillary leak syndrome
     Route: 065
     Dates: start: 20230403
  2. PREDNISONE [Suspect]
     Active Substance: PREDNISONE
     Indication: Cytokine release syndrome
     Route: 065
     Dates: start: 20230424
  3. PREDNISONE [Suspect]
     Active Substance: PREDNISONE
     Indication: Serositis
     Route: 065
  4. LEVETIRACETAM [Suspect]
     Active Substance: LEVETIRACETAM
     Indication: Seizure
     Route: 065
     Dates: start: 20230417
  5. MYCOPHENOLATE MOFETIL [Suspect]
     Active Substance: MYCOPHENOLATE MOFETIL
     Indication: Capillary leak syndrome
     Route: 065
     Dates: start: 20230413, end: 20230414
  6. MYCOPHENOLATE MOFETIL [Suspect]
     Active Substance: MYCOPHENOLATE MOFETIL
     Indication: Cytokine release syndrome
  7. METHYLPREDNISOLONE [Suspect]
     Active Substance: METHYLPREDNISOLONE
     Indication: Capillary leak syndrome
     Route: 065
  8. METHYLPREDNISOLONE [Suspect]
     Active Substance: METHYLPREDNISOLONE
     Indication: Cytokine release syndrome
     Route: 065
     Dates: start: 20230417, end: 20230424
  9. PEMBROLIZUMAB [Concomitant]
     Active Substance: PEMBROLIZUMAB
     Indication: Squamous cell carcinoma of the cervix
     Route: 065
  10. PEMBROLIZUMAB [Concomitant]
     Active Substance: PEMBROLIZUMAB
     Indication: Cervix cancer metastatic
  11. BEVACIZUMAB [Concomitant]
     Active Substance: BEVACIZUMAB
     Indication: Squamous cell carcinoma of the cervix
     Route: 065
  12. BEVACIZUMAB [Concomitant]
     Active Substance: BEVACIZUMAB
     Indication: Cervix cancer metastatic
  13. FUROSEMIDE [Concomitant]
     Active Substance: FUROSEMIDE
     Indication: Generalised oedema
     Route: 042
     Dates: start: 202304
  14. AMILORIDE [Concomitant]
     Active Substance: AMILORIDE
     Indication: Generalised oedema
     Route: 065
     Dates: start: 202304
  15. LACTULOSE [Concomitant]
     Active Substance: LACTULOSE
     Indication: Encephalitis
     Route: 065
     Dates: start: 202304
  16. Immunoglobulin [Concomitant]
     Indication: Capillary leak syndrome
     Route: 042
     Dates: start: 20230414
  17. Immunoglobulin [Concomitant]
     Indication: Cytokine release syndrome
  18. LEVOTHYROXINE [Concomitant]
     Active Substance: LEVOTHYROXINE
     Indication: Thyroid disorder
     Route: 065

REACTIONS (2)
  - Condition aggravated [Unknown]
  - Drug ineffective for unapproved indication [Unknown]

NARRATIVE: CASE EVENT DATE: 20230401
